FAERS Safety Report 4372984-1 (Version None)
Quarter: 2004Q2

REPORT INFORMATION
  Report Type: 
  Country: None (occurrence: None)
  Receive Date: 20040603
  Receipt Date: 20040517
  Transmission Date: 20050107
  Serious: Yes (Other)
  Sender: FDA-Public Use
  Company Number: USA011210301

PATIENT
  Age: 53 Year
  Sex: Male
  Weight: 99 kg

DRUGS (5)
  1. PROZAC [Suspect]
     Indication: DEPRESSION
     Dosage: 20 MG/1 DAY
     Dates: start: 19850101, end: 20030101
  2. PROZAC WEEKLY [Suspect]
     Dosage: 90 MG/1 WEEK
     Dates: start: 20030101
  3. LIPITOR [Concomitant]
  4. TRAZADONE (TRAZODONE) [Concomitant]
  5. TOPROL-XL [Concomitant]

REACTIONS (17)
  - BALANCE DISORDER [None]
  - CARDIAC VALVE DISEASE [None]
  - DECREASED APPETITE [None]
  - DISORIENTATION [None]
  - DIZZINESS [None]
  - HEART RATE IRREGULAR [None]
  - HYPERSENSITIVITY [None]
  - INSOMNIA [None]
  - NAUSEA [None]
  - PULMONARY OEDEMA [None]
  - RASH [None]
  - RECTAL HAEMORRHAGE [None]
  - RELATIONSHIP BREAKDOWN [None]
  - SINUSITIS [None]
  - VERTIGO [None]
  - VISION BLURRED [None]
  - WEIGHT DECREASED [None]
